FAERS Safety Report 5134233-6 (Version None)
Quarter: 2006Q4

REPORT INFORMATION
  Report Type: 
  Country: None (occurrence: None)
  Receive Date: 20061019
  Receipt Date: 20061006
  Transmission Date: 20070319
  Serious: Yes (Other)
  Sender: FDA-Public Use
  Company Number: 2006109381

PATIENT
  Sex: Male

DRUGS (1)
  1. GEODON [Suspect]
     Indication: DRUG USE FOR UNKNOWN INDICATION
     Dosage: 30 CAPSULES (ONCE)

REACTIONS (3)
  - ELECTROCARDIOGRAM QT PROLONGED [None]
  - INCORRECT DOSE ADMINISTERED [None]
  - SUICIDE ATTEMPT [None]
